FAERS Safety Report 7003160-1 (Version None)
Quarter: 2010Q3

REPORT INFORMATION
  Report Type: 
  Country: None (occurrence: None)
  Receive Date: 20100920
  Receipt Date: 20100505
  Transmission Date: 20110219
  Serious: No
  Sender: FDA-Public Use
  Company Number: US-ASTRAZENECA-2010SE20381

PATIENT
  Age: 62 Year
  Sex: Female
  Weight: 160.6 kg

DRUGS (16)
  1. SEROQUEL [Suspect]
     Indication: INSOMNIA
     Route: 048
     Dates: start: 19970101
  2. SEROQUEL [Suspect]
     Indication: ANXIETY
     Route: 048
     Dates: start: 19970101
  3. SEROQUEL [Suspect]
     Indication: MAJOR DEPRESSION
     Route: 048
     Dates: start: 19970101
  4. ACTOS [Concomitant]
     Indication: DIABETES MELLITUS
  5. OMEPRAZOLE [Concomitant]
     Indication: DYSPEPSIA
  6. GABAPENTIN [Concomitant]
     Indication: NERVE INJURY
  7. SALSALATE [Concomitant]
     Indication: FIBROMYALGIA
  8. SERTRALINE HYDROCHLORIDE [Concomitant]
     Indication: DEPRESSION
  9. LASIX [Concomitant]
     Indication: FLUID RETENTION
  10. LISINOPRIL [Concomitant]
     Indication: HYPERTENSION
  11. CYMBALTA [Concomitant]
     Indication: DEPRESSION
  12. OXYBUTYLIN [Concomitant]
     Indication: BLADDER DISORDER
  13. PRAVASTATIN [Concomitant]
     Indication: BLOOD CHOLESTEROL
  14. SYNTHROID [Concomitant]
     Indication: THYROID DISORDER
  15. ALBUTEROL [Concomitant]
     Indication: ASTHMA
  16. OTC SUPPLEMENTS [Concomitant]

REACTIONS (2)
  - DIABETES MELLITUS [None]
  - OBESITY [None]
